FAERS Safety Report 6157992-2 (Version None)
Quarter: 2009Q2

REPORT INFORMATION
  Report Type: 
  Country: None (occurrence: None)
  Receive Date: 20090417
  Receipt Date: 20090404
  Transmission Date: 20091009
  Serious: Yes (Other)
  Sender: FDA-Public Use
  Company Number: US-PFIZER INC-2008088160

PATIENT
  Sex: Male

DRUGS (7)
  1. GEODON [Suspect]
     Indication: BIPOLAR I DISORDER
     Dates: start: 20080301
  2. LYRICA [Suspect]
     Indication: FIBROMYALGIA
     Dates: start: 20080121
  3. LYRICA [Suspect]
     Indication: CONVULSION
  4. CLONAZEPAM [Suspect]
  5. LAMICTAL [Suspect]
  6. ALL OTHER THERAPEUTIC PRODUCTS [Suspect]
  7. ALL OTHER THERAPEUTIC PRODUCTS [Concomitant]

REACTIONS (15)
  - ANGER [None]
  - BIPOLAR DISORDER [None]
  - COGNITIVE DISORDER [None]
  - CONFUSIONAL STATE [None]
  - DRUG INEFFECTIVE [None]
  - FATIGUE [None]
  - FEELING ABNORMAL [None]
  - ILL-DEFINED DISORDER [None]
  - MANIA [None]
  - MENTAL DISORDER [None]
  - PARALYSIS [None]
  - PERSONALITY CHANGE [None]
  - THINKING ABNORMAL [None]
  - UNEVALUABLE EVENT [None]
  - VIOLENCE-RELATED SYMPTOM [None]
